FAERS Safety Report 9363898 (Version 2)
Quarter: 2013Q3

REPORT INFORMATION
  Report Type: Spontaneous
  Country: VE (occurrence: VE)
  Receive Date: 20130624
  Receipt Date: 20130701
  Transmission Date: 20140515
  Serious: Yes (Other)
  Sender: FDA-Public Use
  Company Number: VE-PFIZER INC-2013187153

PATIENT
  Age: 66 Year
  Sex: Female

DRUGS (2)
  1. LIPITOR [Suspect]
     Dosage: DAILY
     Route: 048
     Dates: end: 20130317
  2. COAPROVEL [Concomitant]
     Indication: HYPERTENSION
     Dosage: 150 MG, DAILY
     Route: 048

REACTIONS (2)
  - Fall [Recovered/Resolved]
  - Head injury [Recovered/Resolved]
